FAERS Safety Report 6436285-X (Version None)
Quarter: 2009Q4

REPORT INFORMATION
  Report Type: 
  Country: None (occurrence: None)
  Receive Date: 20091111
  Receipt Date: 20091103
  Transmission Date: 20100525
  Serious: Yes (Hospitalization)
  Sender: FDA-Public Use
  Company Number: A0816159A

PATIENT
  Sex: Female
  Weight: 72 kg

DRUGS (1)
  1. SERETIDE [Suspect]
     Indication: ASTHMA
     Dosage: 1PUFF THREE TIMES PER DAY
     Dates: start: 20050101

REACTIONS (2)
  - ASTHMATIC CRISIS [None]
  - OVERDOSE [None]
